FAERS Safety Report 4739199-6 (Version None)
Quarter: 2005Q3

REPORT INFORMATION
  Report Type: 
  Country: None (occurrence: None)
  Receive Date: 20050810
  Receipt Date: 20050519
  Transmission Date: 20060218
  Serious: No
  Sender: FDA-Public Use
  Company Number: US-GLAXOSMITHKLINE-A0559335A

PATIENT
  Age: 33 Year
  Sex: Female

DRUGS (1)
  1. PAXIL CR [Suspect]
     Indication: PANIC DISORDER
     Dosage: 25MG PER DAY
     Route: 048
     Dates: start: 20020401, end: 20050507

REACTIONS (2)
  - DRUG WITHDRAWAL SYNDROME [None]
  - PANIC ATTACK [None]
